FAERS Safety Report 5382231-X (Version None)
Quarter: 2007Q3

REPORT INFORMATION
  Report Type: 
  Country: None (occurrence: None)
  Receive Date: 20070709
  Receipt Date: 20070703
  Transmission Date: 20080115
  Serious: Yes (Other)
  Sender: FDA-Public Use
  Company Number: US-ASTRAZENECA-2007UW15628

PATIENT
  Age: 73 Year
  Sex: Male

DRUGS (1)
  1. SEROQUEL [Suspect]
     Indication: SLEEP DISORDER
     Route: 048
     Dates: start: 20040101

REACTIONS (5)
  - AORTIC ANEURYSM [None]
  - ASTHENIA [None]
  - FALL [None]
  - ILL-DEFINED DISORDER [None]
  - PNEUMONIA [None]
